FAERS Safety Report 7206856-1 (Version None)
Quarter: 2010Q4

REPORT INFORMATION
  Report Type: 
  Country: None (occurrence: None)
  Receive Date: 20101230
  Receipt Date: 20101230
  Transmission Date: 20110411
  Serious: Yes (Death)
  Sender: FDA-Public Use
  Company Number: None

PATIENT
  Age: 61 Year
  Sex: Female
  Weight: 124.7392 kg

DRUGS (1)
  1. PROPOXYPHENE HCL AND ACETAMINOPHEN [Suspect]
     Indication: PAIN
     Dosage: 1-2 TABLETS EVERY 6 HOURS PO
     Route: 048
     Dates: start: 20101109, end: 20101121

REACTIONS (8)
  - BLOOD GLUCOSE INCREASED [None]
  - BLOOD PRESSURE INCREASED [None]
  - CARDIAC ARREST [None]
  - DIZZINESS [None]
  - HEART RATE ABNORMAL [None]
  - HYPOVENTILATION [None]
  - NAUSEA [None]
  - UNRESPONSIVE TO STIMULI [None]
